FAERS Safety Report 7801794-5 (Version None)
Quarter: 2011Q4

REPORT INFORMATION
  Report Type: 
  Country: None (occurrence: None)
  Receive Date: 20111007
  Receipt Date: 20110930
  Transmission Date: 20120403
  Serious: Yes (Hospitalization)
  Sender: FDA-Public Use
  Company Number: AU-PFIZER INC-2011189951

PATIENT
  Age: 65 Year
  Sex: Male

DRUGS (10)
  1. ATORVASTATIN [Concomitant]
     Indication: HYPERCHOLESTEROLAEMIA
     Dosage: 20 MG, 1X/DAY IN THE MORNING
     Route: 048
  2. TAMSULOSIN [Concomitant]
     Dosage: 400 UG, 1X/DAY IN THE MORNING
  3. PRISTIQ [Suspect]
     Dosage: 12.5 MG, 1X/DAY IN THE MORNING
  4. PERINDOPRIL ARGININE [Concomitant]
     Dosage: 5 MG, 1X/DAY IN THE MORNING
  5. PRISTIQ [Suspect]
     Indication: DEPRESSION
     Dosage: 25 MG, 1X/DAY IN THE MORNING
     Dates: start: 20100301
  6. COUMADIN [Concomitant]
     Dosage: 9 MG, 1X/DAY AT 6PM
  7. PANTOPRAZOLE [Concomitant]
     Indication: GASTROOESOPHAGEAL REFLUX DISEASE
     Dosage: 40 MG, 1X/DAY
     Route: 048
     Dates: start: 20110701, end: 20110901
  8. ACETYLSALICYLIC ACID [Concomitant]
     Dosage: 100 MG, MONDAY, WEDNESDAY, FRIDAY MORNING
     Route: 048
  9. SOTALOL [Concomitant]
     Dosage: 120 MG, 2X/DAY
     Route: 048
  10. METFORMIN HCL [Concomitant]
     Dosage: 1000 MG, 1X/DAY IN THE MORNING
     Dates: start: 20100101

REACTIONS (5)
  - WRONG TECHNIQUE IN DRUG USAGE PROCESS [None]
  - CHEST DISCOMFORT [None]
  - CHEST PAIN [None]
  - DRUG INEFFECTIVE [None]
  - DYSPNOEA [None]
